FAERS Safety Report 23915180 (Version 1)
Quarter: 2024Q2

REPORT INFORMATION
  Report Type: Spontaneous
  Country: US (occurrence: US)
  Receive Date: 20240529
  Receipt Date: 20240529
  Transmission Date: 20240716
  Serious: Yes (Hospitalization, Other)
  Sender: FDA-Public Use
  Company Number: US-Calliditas-2024CAL00855

PATIENT
  Age: 60 Year
  Sex: Male

DRUGS (2)
  1. TARPEYO [Suspect]
     Active Substance: BUDESONIDE
     Indication: IgA nephropathy
     Route: 048
     Dates: start: 20231130
  2. WELIREG [Concomitant]
     Active Substance: BELZUTIFAN
     Indication: Renal cancer
     Dates: start: 20240415

REACTIONS (2)
  - Hospitalisation [Unknown]
  - Renal cancer [Unknown]

NARRATIVE: CASE EVENT DATE: 20240408
